FAERS Safety Report 6783996-2 (Version None)
Quarter: 2010Q2

REPORT INFORMATION
  Report Type: 
  Country: None (occurrence: None)
  Receive Date: 20100622
  Receipt Date: 20100621
  Transmission Date: 20101027
  Serious: Yes (Other)
  Sender: FDA-Public Use
  Company Number: US-B.I. PHARMACEUTICALS,INC./RIDGEFIELD-2010-BP-06949BP

PATIENT
  Age: 74 Year
  Sex: Female

DRUGS (8)
  1. MICARDIS [Suspect]
     Indication: HYPERTENSION
     Route: 048
     Dates: start: 20040101
  2. MICARDIS [Suspect]
     Dosage: 80 MG
     Route: 048
     Dates: start: 20100501, end: 20100620
  3. METHADONE [Concomitant]
     Indication: ARTHRITIS
  4. VITAMIN D [Concomitant]
     Indication: ARTHRITIS
  5. CELEBREX [Concomitant]
     Indication: ARTHRITIS
  6. IMIPRAM TAB [Concomitant]
     Indication: DEPRESSION
  7. HYDROCODONE [Concomitant]
     Indication: PAIN
  8. ALPRAZOLAM [Concomitant]
     Indication: ANXIETY

REACTIONS (1)
  - PRECANCEROUS SKIN LESION [None]
